FAERS Safety Report 4830741-3 (Version None)
Quarter: 2005Q4

REPORT INFORMATION
  Report Type: 
  Country: None (occurrence: None)
  Receive Date: 20051117
  Receipt Date: 20051110
  Transmission Date: 20060501
  Serious: Yes (Hospitalization)
  Sender: FDA-Public Use
  Company Number: PHHO2005JP17967

PATIENT
  Age: 77 Year
  Sex: Male

DRUGS (10)
  1. LOCHOL [Suspect]
     Indication: HYPERCHOLESTEROLAEMIA
     Dosage: 20 MG, QD
     Route: 048
     Dates: start: 20011017
  2. PANALDINE [Concomitant]
     Indication: CEREBRAL INFARCTION
  3. ADALAT [Concomitant]
     Indication: HYPERTENSION
  4. ADALAT [Concomitant]
     Indication: HYPERTENSION
  5. SUNRYTHM [Concomitant]
     Indication: VENTRICULAR EXTRASYSTOLES
  6. GASTER [Concomitant]
     Indication: GASTRIC ULCER
  7. MEPTIN [Concomitant]
     Indication: BRONCHITIS CHRONIC
  8. THEO-DUR [Concomitant]
     Indication: BRONCHITIS CHRONIC
     Dates: start: 20020630, end: 20050606
  9. MICARDIS [Concomitant]
     Indication: HYPERTENSION
  10. SPIRIVA [Concomitant]
     Indication: BRONCHITIS CHRONIC

REACTIONS (3)
  - BACK PAIN [None]
  - SPINAL COLUMN STENOSIS [None]
  - SPINAL OPERATION [None]
